FAERS Safety Report 10024228 (Version 2)
Quarter: 2014Q2

REPORT INFORMATION
  Report Type: Spontaneous
  Country: US (occurrence: US)
  Receive Date: 20140320
  Receipt Date: 20140507
  Transmission Date: 20141212
  Serious: No
  Sender: FDA-Public Use
  Company Number: US-PFIZER INC-2014078315

PATIENT
  Age: 63 Year
  Sex: Female

DRUGS (11)
  1. DILANTIN-125 [Suspect]
     Indication: CONVULSION
     Dosage: 300 MG, DAILY (100MG 1 IN AM, 2 IN PM)
     Route: 048
     Dates: start: 20131113
  2. DILANTIN-125 [Suspect]
     Dosage: 200, BID
     Dates: end: 20140331
  3. PREVACID [Concomitant]
     Indication: GASTROOESOPHAGEAL REFLUX DISEASE
     Dosage: 30 UNK, QD
  4. PRAVACHOL [Concomitant]
     Dosage: UNK
  5. GLUCOPHAGE [Concomitant]
     Indication: DIABETES MELLITUS
     Dosage: 1000 UNK, BID
  6. GLUCOTROL [Concomitant]
     Indication: DIABETES MELLITUS
     Dosage: 10 UNK, BID
  7. NOVOLOG [Concomitant]
     Indication: DIABETES MELLITUS
     Dosage: 70/30 18 IU, 1X/DAY (Q AM)
  8. STOOL SOFTENER [Concomitant]
     Dosage: UNK
  9. ASPIRIN [Concomitant]
     Dosage: UNK
  10. PRO-AIR [Concomitant]
     Dosage: UNK
  11. NOVOLIN [Concomitant]
     Dosage: UNK

REACTIONS (3)
  - Dizziness [Recovered/Resolved]
  - Gait disturbance [Unknown]
  - Nausea [Unknown]
